FAERS Safety Report 19841408 (Version 2)
Quarter: 2021Q4

REPORT INFORMATION
  Report Type: Report from Study
  Country: US (occurrence: US)
  Receive Date: 20210916
  Receipt Date: 20211004
  Transmission Date: 20220303
  Serious: Yes (Hospitalization)
  Sender: FDA-Public Use
  Company Number: US-BIOGEN-2021BI01047929

PATIENT
  Age: 73 Year
  Sex: Male

DRUGS (2)
  1. VUMERITY [Suspect]
     Active Substance: DIROXIMEL FUMARATE
     Indication: Multiple sclerosis
     Dosage: 1-231 MG  BY MOUTH FOR 14 DAYS, THEN 1-231 MG  BY MOUTH 2 TIMES A DAY FOR 30 DAYS, THEN 1-231 MG ...
     Route: 048
     Dates: start: 202108
  2. VUMERITY [Suspect]
     Active Substance: DIROXIMEL FUMARATE
     Dosage: INITIAL DOSE
     Route: 048
     Dates: start: 20210825

REACTIONS (6)
  - Aspiration [Recovered/Resolved]
  - Bronchial secretion retention [Recovered/Resolved]
  - Memory impairment [Unknown]
  - Troponin increased [Unknown]
  - Prescribed underdose [Unknown]
  - Expanded disability status scale score increased [Unknown]

NARRATIVE: CASE EVENT DATE: 20210101
